FAERS Safety Report 24276711 (Version 1)
Quarter: 2024Q3

REPORT INFORMATION
  Report Type: Spontaneous
  Country: FR (occurrence: FR)
  Receive Date: 20240903
  Receipt Date: 20240903
  Transmission Date: 20241016
  Serious: Yes (Other)
  Sender: ACCORD
  Company Number: None

PATIENT
  Age: 31 Year
  Sex: Female

DRUGS (56)
  1. CLOZAPINE [Suspect]
     Active Substance: CLOZAPINE
     Indication: Schizophrenia
     Dosage: 200 MG/D
     Dates: start: 20240119, end: 20240426
  2. FLUPENTIXOL [Suspect]
     Active Substance: FLUPENTIXOL
     Indication: Psychotic disorder
     Dosage: 120 MG/D
     Dates: start: 20240704, end: 20240704
  3. GABAPENTIN [Suspect]
     Active Substance: GABAPENTIN
     Indication: Neuralgia
     Dosage: 2400 MG/D
     Dates: start: 20240619
  4. SCOPOLAMINE [Suspect]
     Active Substance: SCOPOLAMINE
     Indication: Salivary hypersecretion
     Dosage: 1 PATCH / 72H
     Dates: start: 20240629, end: 20240718
  5. IMOVANE [Suspect]
     Active Substance: ZOPICLONE
     Indication: Insomnia
     Dosage: 1 TABLET/D
     Dates: start: 20240511, end: 20240511
  6. LIDOCAINE [Suspect]
     Active Substance: LIDOCAINE
     Indication: Pain
     Dosage: 1 DAY OUT OF 3
     Dates: start: 20240221, end: 20240514
  7. MORPHINE SULFATE [Suspect]
     Active Substance: MORPHINE SULFATE
     Indication: Pain
     Dosage: 5 MG AS REQUIRED
     Dates: start: 20240514
  8. SKENAN [Suspect]
     Active Substance: MORPHINE SULFATE
     Indication: Pain
     Dosage: 10 MG/D
     Dates: start: 20240610, end: 20240613
  9. DUPHALAC [Suspect]
     Active Substance: LACTULOSE
     Indication: Constipation
     Dosage: 3 SACHETS /D
     Dates: start: 20240322, end: 20240401
  10. MOVICOL [Suspect]
     Active Substance: POLYETHYLENE GLYCOL 3350\POTASSIUM CHLORIDE\SODIUM BICARBONATE\SODIUM CHLORIDE
     Indication: Constipation
     Dosage: 2 SACHETS/D
     Dates: start: 20240604, end: 20240626
  11. CYAMEMAZINE [Suspect]
     Active Substance: CYAMEMAZINE
     Indication: Psychotic disorder
     Dosage: 30 MG AS REQUIRED
     Dates: start: 20240322, end: 20240511
  12. NALOXEGOL [Suspect]
     Active Substance: NALOXEGOL
     Indication: Constipation
     Dosage: 25 MG/D
     Dates: start: 20240705, end: 20240718
  13. FERROUS SULFATE\FOLIC ACID [Concomitant]
     Active Substance: FERROUS SULFATE\FOLIC ACID
     Indication: Iron deficiency
     Dosage: 80 MG/D
     Dates: start: 20240119, end: 20240530
  14. OXYCODONE HYDROCHLORIDE [Concomitant]
     Active Substance: OXYCODONE HYDROCHLORIDE
     Indication: Pain
     Dosage: 5 MG AS REQUIRED
     Dates: start: 20240313, end: 20240514
  15. ACUPAN [Concomitant]
     Active Substance: NEFOPAM HYDROCHLORIDE
     Indication: Pain
     Dosage: 20 MG AS REQUIRED
     Dates: start: 20240514, end: 20240530
  16. VALIUM [Concomitant]
     Active Substance: DIAZEPAM
     Indication: Product used for unknown indication
     Dosage: 10 MG/D
     Dates: start: 20240123, end: 20240412
  17. FOLIC ACID [Concomitant]
     Active Substance: FOLIC ACID
     Indication: Folate deficiency
     Dosage: 5 MG/D
     Dates: start: 20240119, end: 20240530
  18. OXYCONTIN [Concomitant]
     Active Substance: OXYCODONE HYDROCHLORIDE
     Indication: Pain
     Dosage: 20 MG/D
     Dates: start: 20240123, end: 20240514
  19. ABILIFY [Concomitant]
     Active Substance: ARIPIPRAZOLE
     Indication: Pain
     Dosage: 5 MG/D
     Dates: start: 20240119, end: 20240119
  20. CLOZAPINE [Suspect]
     Active Substance: CLOZAPINE
     Indication: Schizophrenia
     Dosage: 50 MG/D
     Dates: start: 20240104, end: 20240108
  21. CLOZAPINE [Suspect]
     Active Substance: CLOZAPINE
     Indication: Schizophrenia
     Dosage: 400 MG/D
     Dates: start: 20240514
  22. CLOZAPINE [Suspect]
     Active Substance: CLOZAPINE
     Indication: Schizophrenia
     Dosage: 150 MG/D
     Dates: start: 20240112, end: 20240119
  23. CLOZAPINE [Suspect]
     Active Substance: CLOZAPINE
     Indication: Schizophrenia
     Dosage: 100 MG/D
     Dates: start: 20240108, end: 20240112
  24. VALIUM [Concomitant]
     Active Substance: DIAZEPAM
     Indication: Product used for unknown indication
     Dosage: 10 MG AS REQUIRED
     Dates: start: 20240104, end: 20240115
  25. ABILIFY [Concomitant]
     Active Substance: ARIPIPRAZOLE
     Indication: Pain
     Dosage: 400 MG/MONTH
     Dates: start: 20240126, end: 20240515
  26. NALOXEGOL [Suspect]
     Active Substance: NALOXEGOL
     Indication: Constipation
     Dosage: 25 MG/D
     Dates: start: 20240605, end: 20240614
  27. NALOXEGOL [Suspect]
     Active Substance: NALOXEGOL
     Indication: Constipation
     Dosage: 12.5 MG/D
     Dates: start: 20240405, end: 20240605
  28. SKENAN [Suspect]
     Active Substance: MORPHINE SULFATE
     Indication: Pain
     Dosage: 40 MG/D
     Dates: start: 20240514, end: 20240524
  29. SKENAN [Suspect]
     Active Substance: MORPHINE SULFATE
     Indication: Pain
     Dosage: 15 MG/D
     Dates: start: 20240610, end: 20240610
  30. SKENAN [Suspect]
     Active Substance: MORPHINE SULFATE
     Indication: Pain
     Dosage: 20 MG/D
     Dates: start: 20240524, end: 20240610
  31. OXYCODONE HYDROCHLORIDE [Concomitant]
     Active Substance: OXYCODONE HYDROCHLORIDE
     Indication: Pain
     Dosage: 5 MG AS REQUIRED
     Dates: start: 20240115, end: 20240229
  32. DUPHALAC [Suspect]
     Active Substance: LACTULOSE
     Indication: Constipation
     Dosage: 3 SACHETS /D
     Dates: start: 20240405, end: 20240604
  33. DUPHALAC [Suspect]
     Active Substance: LACTULOSE
     Indication: Constipation
     Dosage: 1 SACHET AS REQUIRED
     Dates: start: 20240404, end: 20240405
  34. DUPHALAC [Suspect]
     Active Substance: LACTULOSE
     Indication: Constipation
     Dosage: 2 SACHETS /D
     Dates: start: 20240627
  35. MOVICOL [Suspect]
     Active Substance: POLYETHYLENE GLYCOL 3350\POTASSIUM CHLORIDE\SODIUM BICARBONATE\SODIUM CHLORIDE
     Indication: Constipation
     Dosage: 2 SACHETS/D
     Dates: start: 20240130, end: 20240226
  36. MOVICOL [Suspect]
     Active Substance: POLYETHYLENE GLYCOL 3350\POTASSIUM CHLORIDE\SODIUM BICARBONATE\SODIUM CHLORIDE
     Indication: Constipation
     Dosage: 4 SACHETS/D
     Dates: start: 20240626, end: 20240627
  37. MOVICOL [Suspect]
     Active Substance: POLYETHYLENE GLYCOL 3350\POTASSIUM CHLORIDE\SODIUM BICARBONATE\SODIUM CHLORIDE
     Indication: Constipation
     Dosage: 1 SACHETS/D
     Dates: start: 20240115, end: 20240119
  38. CYAMEMAZINE [Suspect]
     Active Substance: CYAMEMAZINE
     Indication: Psychotic disorder
     Dosage: 100 MG/D
     Dates: start: 20240708, end: 20240711
  39. CYAMEMAZINE [Suspect]
     Active Substance: CYAMEMAZINE
     Indication: Psychotic disorder
     Dosage: 200 MG/D
     Dates: start: 20240511, end: 20240708
  40. CYAMEMAZINE [Suspect]
     Active Substance: CYAMEMAZINE
     Indication: Psychotic disorder
     Dosage: 50 MG AS REQUIRED
     Dates: start: 20240112, end: 20240322
  41. CYAMEMAZINE [Suspect]
     Active Substance: CYAMEMAZINE
     Indication: Psychotic disorder
     Dosage: 250 MG/D
     Dates: start: 20240104, end: 20240112
  42. FLUPENTIXOL [Suspect]
     Active Substance: FLUPENTIXOL
     Indication: Psychotic disorder
     Dosage: 100 MG/D
     Dates: start: 20240624, end: 20240704
  43. FLUPENTIXOL [Suspect]
     Active Substance: FLUPENTIXOL
     Indication: Psychotic disorder
     Dosage: 100 MG/D
     Dates: start: 20240704, end: 20240718
  44. FLUPENTIXOL [Suspect]
     Active Substance: FLUPENTIXOL
     Indication: Psychotic disorder
     Dosage: 60 MG/D
     Dates: start: 20240529
  45. FLUPENTIXOL [Suspect]
     Active Substance: FLUPENTIXOL
     Indication: Psychotic disorder
     Dosage: 80 MG/D
     Dates: start: 20240611, end: 20240624
  46. FLUPENTIXOL [Suspect]
     Active Substance: FLUPENTIXOL
     Indication: Psychotic disorder
     Dosage: 30 MG/D
     Dates: start: 20240515, end: 20240529
  47. GABAPENTIN [Suspect]
     Active Substance: GABAPENTIN
     Indication: Neuralgia
     Dosage: 300 MG/D
     Dates: start: 20240213, end: 20240216
  48. GABAPENTIN [Suspect]
     Active Substance: GABAPENTIN
     Indication: Neuralgia
     Dosage: 600 MG/D
     Dates: start: 20240216, end: 20240221
  49. GABAPENTIN [Suspect]
     Active Substance: GABAPENTIN
     Indication: Neuralgia
     Dosage: 1200 MG/D
     Dates: start: 20240301, end: 20240405
  50. GABAPENTIN [Suspect]
     Active Substance: GABAPENTIN
     Indication: Neuralgia
     Dosage: 1500 MG/D
     Dates: start: 20240405, end: 20240425
  51. GABAPENTIN [Suspect]
     Active Substance: GABAPENTIN
     Indication: Neuralgia
     Dosage: 900 MG/D
     Dates: start: 20240221, end: 20240301
  52. GABAPENTIN [Suspect]
     Active Substance: GABAPENTIN
     Indication: Neuralgia
     Dosage: 1800 MG/D
     Dates: start: 20240425, end: 20240619
  53. IMOVANE [Suspect]
     Active Substance: ZOPICLONE
     Indication: Insomnia
     Dosage: 1/2 TABLET AS REQUIRED
     Dates: start: 20240614
  54. ACUPAN [Concomitant]
     Active Substance: NEFOPAM HYDROCHLORIDE
     Indication: Pain
     Dosage: 80 MG/D
     Dates: start: 20240221, end: 20240311
  55. LIDOCAINE [Suspect]
     Active Substance: LIDOCAINE
     Indication: Pain
     Dosage: 1 DAY OUT OF 3
     Dates: start: 20240621, end: 20240718
  56. MORPHINE SULFATE [Suspect]
     Active Substance: MORPHINE SULFATE
     Indication: Pain
     Dosage: 5 MG AS REQUIRED
     Dates: start: 20240112, end: 20240115

REACTIONS (1)
  - Hyperprolactinaemia [Recovering/Resolving]

NARRATIVE: CASE EVENT DATE: 20240701
